FAERS Safety Report 19078725 (Version 1)
Quarter: 2021Q1

REPORT INFORMATION
  Report Type: Spontaneous
  Country: TR (occurrence: TR)
  Receive Date: 20210331
  Receipt Date: 20210331
  Transmission Date: 20210420
  Serious: Yes (Death, Other)
  Sender: FDA-Public Use
  Company Number: TR-INCYTE CORPORATION-2019IN013535

PATIENT

DRUGS (1)
  1. JAKAVI [Suspect]
     Active Substance: RUXOLITINIB
     Indication: MYELOFIBROSIS
     Dosage: UNK
     Route: 065
     Dates: start: 201702, end: 201811

REACTIONS (4)
  - Drug ineffective [Fatal]
  - Splenomegaly [Unknown]
  - Post procedural complication [Fatal]
  - Abdominal abscess [Fatal]
